FAERS Safety Report 15801608 (Version 1)
Quarter: 2019Q1

REPORT INFORMATION
  Report Type: Spontaneous
  Country: US (occurrence: US)
  Receive Date: 20190109
  Receipt Date: 20190109
  Transmission Date: 20190417
  Serious: No
  Sender: FDA-Public Use
  Company Number: US-PFIZER INC-2019002257

PATIENT
  Age: 51 Year
  Sex: Female
  Weight: 43.54 kg

DRUGS (6)
  1. VENTOLIN [Concomitant]
     Active Substance: ALBUTEROL SULFATE
     Dosage: UNK
     Route: 055
  2. METOPROLOL. [Concomitant]
     Active Substance: METOPROLOL
     Indication: CARDIAC DISORDER
     Dosage: UNK
  3. ASPIRIN. [Concomitant]
     Active Substance: ASPIRIN
     Dosage: 81 MG, UNK
  4. SIMVACOR [Concomitant]
     Active Substance: SIMVASTATIN
     Dosage: UNK
     Route: 055
  5. DUONEB [Concomitant]
     Active Substance: ALBUTEROL SULFATE\IPRATROPIUM BROMIDE
     Dosage: UNK
  6. CHANTIX [Suspect]
     Active Substance: VARENICLINE TARTRATE
     Indication: SMOKING CESSATION THERAPY
     Dosage: 0.5 MG, 2X/DAY
     Route: 048
     Dates: start: 20181224, end: 20181231

REACTIONS (5)
  - Malaise [Recovering/Resolving]
  - Nausea [Unknown]
  - Headache [Unknown]
  - Insomnia [Unknown]
  - Depression [Recovering/Resolving]

NARRATIVE: CASE EVENT DATE: 201812
